FAERS Safety Report 7090819-3 (Version None)
Quarter: 2010Q4

REPORT INFORMATION
  Report Type: 
  Country: None (occurrence: None)
  Receive Date: 20101012
  Receipt Date: 20100810
  Transmission Date: 20110411
  Serious: No
  Sender: FDA-Public Use
  Company Number: PR-001190

PATIENT
  Sex: Female
  Weight: 20.4119 kg

DRUGS (2)
  1. KUVAN [Suspect]
     Indication: PHENYLKETONURIA
     Dosage: 300 MG QD ORAL
     Route: 048
     Dates: start: 20090323
  2. VALPROIC ACID [Concomitant]

REACTIONS (5)
  - DENGUE FEVER [None]
  - DYSPEPSIA [None]
  - MALAISE [None]
  - NASOPHARYNGITIS [None]
  - PLATELET COUNT DECREASED [None]
